FAERS Safety Report 23277033 (Version 1)
Quarter: 2023Q4

REPORT INFORMATION
  Report Type: Spontaneous
  Country: PL (occurrence: PL)
  Receive Date: 20231208
  Receipt Date: 20231208
  Transmission Date: 20240109
  Serious: Yes (Other)
  Sender: FDA-Public Use
  Company Number: PL-BAYER-2023A174509

PATIENT
  Age: 25 Year
  Sex: Male

DRUGS (1)
  1. BETAFERON [Suspect]
     Active Substance: INTERFERON BETA-1B
     Indication: Multiple sclerosis
     Dosage: UNK
     Dates: start: 201602

REACTIONS (16)
  - Visual impairment [None]
  - Multiple sclerosis relapse [None]
  - Diplopia [None]
  - Ataxia [None]
  - Dysdiadochokinesis [None]
  - Ophthalmoplegia [None]
  - Monoparesis [None]
  - Paraesthesia [None]
  - Micturition disorder [None]
  - Dizziness [None]
  - Balance disorder [None]
  - Gait disturbance [None]
  - Dysaesthesia [None]
  - Decreased vibratory sense [None]
  - Bladder sphincter atony [None]
  - Drug ineffective [None]

NARRATIVE: CASE EVENT DATE: 20160401
